FAERS Safety Report 7915883-8 (Version None)
Quarter: 2011Q4

REPORT INFORMATION
  Report Type: 
  Country: None (occurrence: None)
  Receive Date: 20111115
  Receipt Date: 20111108
  Transmission Date: 20120403
  Serious: Yes (Other)
  Sender: FDA-Public Use
  Company Number: GB-PFIZER INC-2011273886

PATIENT
  Age: 41 Year
  Sex: Female
  Weight: 79 kg

DRUGS (7)
  1. NICOTINE [Concomitant]
     Dosage: UNK
     Dates: start: 20111017
  2. VARENICLINE TARTRATE [Suspect]
     Dosage: UNK
     Dates: start: 20110919
  3. NICORETTE [Concomitant]
     Dosage: UNK
     Dates: start: 20110725, end: 20110912
  4. OTOMIZE [Concomitant]
     Dosage: UNK
     Dates: start: 20110930, end: 20111007
  5. SALBUTAMOL [Concomitant]
     Dosage: UNK
     Dates: start: 20110725, end: 20110822
  6. NICOTINE [Concomitant]
     Dosage: UNK
     Dates: start: 20110704, end: 20110919
  7. ACETAMINOPHEN AND CODEINE PHOSPHATE [Concomitant]
     Dosage: UNK
     Dates: start: 20110725

REACTIONS (1)
  - BLOOD PRESSURE INCREASED [None]
